FAERS Safety Report 19468207 (Version 1)
Quarter: 2021Q2

REPORT INFORMATION
  Report Type: Spontaneous
  Country: CN (occurrence: CN)
  Receive Date: 20210628
  Receipt Date: 20210628
  Transmission Date: 20210717
  Serious: Yes (Hospitalization, Other)
  Sender: FDA-Public Use
  Company Number: CN-ASTRAZENECA-2021A525372

PATIENT
  Age: 19358 Day
  Sex: Female
  Weight: 52 kg

DRUGS (7)
  1. OSIMERTINIB MESYLATE. [Suspect]
     Active Substance: OSIMERTINIB MESYLATE
     Indication: LUNG NEOPLASM MALIGNANT
     Route: 048
     Dates: start: 20210321
  2. GLUTATHIONE [Concomitant]
     Active Substance: GLUTATHIONE
     Route: 041
  3. TIOPRONIN [Concomitant]
     Active Substance: TIOPRONIN
     Dosage: 0.2%
     Route: 041
  4. GLUCOSE INJECTION [Concomitant]
     Active Substance: DEXTROSE
     Route: 041
  5. GANSHUANG [Concomitant]
     Route: 048
  6. SODIUM CHLORIDE. [Concomitant]
     Active Substance: SODIUM CHLORIDE
     Dosage: 0.9%
     Route: 041
  7. SILIBININ [Concomitant]
     Active Substance: SILIBININ
     Indication: LIVER DISORDER
     Route: 048

REACTIONS (4)
  - Drug-induced liver injury [Recovering/Resolving]
  - Chest pain [Unknown]
  - Decreased appetite [Unknown]
  - Nausea [Unknown]

NARRATIVE: CASE EVENT DATE: 20210527
